FAERS Safety Report 24691272 (Version 1)
Quarter: 2024Q4

REPORT INFORMATION
  Report Type: Spontaneous
  Country: DE (occurrence: DE)
  Receive Date: 20241203
  Receipt Date: 20241203
  Transmission Date: 20250115
  Serious: Yes (Other)
  Sender: ELI LILLY AND COMPANY
  Company Number: DE-ELI_LILLY_AND_COMPANY-DE202411013943

PATIENT
  Age: 37 Year
  Sex: Male

DRUGS (1)
  1. TALTZ [Suspect]
     Active Substance: IXEKIZUMAB
     Indication: Psoriasis
     Dosage: 160 MG EVERY TWO WEEKS, OTHER 2(80MG)
     Route: 065

REACTIONS (3)
  - Hepatitis [Unknown]
  - Inappropriate schedule of product administration [Unknown]
  - Overdose [Unknown]
